FAERS Safety Report 6293883-4 (Version None)
Quarter: 2009Q3

REPORT INFORMATION
  Report Type: 
  Country: None (occurrence: None)
  Receive Date: 20090803
  Receipt Date: 20090723
  Transmission Date: 20100115
  Serious: Yes (Hospitalization)
  Sender: FDA-Public Use
  Company Number: US-ASTRAZENECA-2009SE05811

PATIENT
  Age: 11257 Day
  Sex: Male

DRUGS (1)
  1. QUETIAPINE FUMARATE [Suspect]
     Indication: SCHIZOPHRENIA
     Route: 065
     Dates: start: 20081002, end: 20081219

REACTIONS (2)
  - DRUG INEFFECTIVE [None]
  - SCHIZOPHRENIA [None]
